FAERS Safety Report 9528683 (Version 1)
Quarter: 2013Q3

REPORT INFORMATION
  Report Type: Spontaneous
  Country: US (occurrence: US)
  Receive Date: 20130917
  Receipt Date: 20130917
  Transmission Date: 20140515
  Serious: No
  Sender: FDA-Public Use
  Company Number: US-BAYER-2013-111566

PATIENT
  Age: 72 Year
  Sex: Male
  Weight: 91 kg

DRUGS (2)
  1. ALEVE CAPLET [Suspect]
     Indication: SWELLING
     Dosage: 2 DF, UNK
     Route: 048
     Dates: start: 201309
  2. OMEPRAZOLE [Concomitant]
     Dosage: UNK

REACTIONS (2)
  - Incorrect dose administered [None]
  - Off label use [None]
